FAERS Safety Report 7118604-4 (Version None)
Quarter: 2010Q4

REPORT INFORMATION
  Report Type: 
  Country: None (occurrence: None)
  Receive Date: 20101123
  Receipt Date: 20101118
  Transmission Date: 20110411
  Serious: Yes (Death, Hospitalization, Other)
  Sender: FDA-Public Use
  Company Number: PHHY2010JP78867

PATIENT
  Age: 65 Year
  Sex: Male

DRUGS (22)
  1. NEORAL [Suspect]
     Indication: RENAL TRANSPLANT
     Dosage: 450 MG, UNK
     Route: 048
     Dates: start: 20100131, end: 20100209
  2. NEORAL [Suspect]
     Dosage: 225 MG, UNK
     Route: 048
     Dates: start: 20100210, end: 20100210
  3. NEORAL [Suspect]
     Dosage: 450 MG, UNK
     Route: 048
     Dates: start: 20100211, end: 20100212
  4. NEORAL [Suspect]
     Dosage: 300 MG, UNK
     Route: 048
     Dates: start: 20100213, end: 20100215
  5. NEORAL [Suspect]
     Dosage: 200 MG, UNK
     Route: 048
     Dates: start: 20100216, end: 20100521
  6. SANDIMMUNE [Suspect]
     Indication: RENAL TRANSPLANT
     Dosage: 150 MG, UNK
     Route: 042
     Dates: start: 20100210, end: 20100210
  7. CELLCEPT [Suspect]
     Indication: RENAL TRANSPLANT
     Dosage: 1000 MG
     Route: 048
     Dates: start: 20100113, end: 20100209
  8. CELLCEPT [Suspect]
     Dosage: 1500MG
     Route: 048
     Dates: start: 20100210, end: 20100302
  9. CELLCEPT [Suspect]
     Dosage: 1000 MG
     Route: 048
     Dates: start: 20100303, end: 20100521
  10. PREDONINE [Suspect]
     Indication: RENAL TRANSPLANT
     Dosage: UNK
     Route: 048
     Dates: start: 20100121, end: 20100211
  11. PREDONINE [Suspect]
     Dosage: UNK
     Route: 048
     Dates: start: 20100212, end: 20100213
  12. PREDONINE [Suspect]
     Dosage: UNK
     Route: 048
     Dates: start: 20100214, end: 20100217
  13. PREDONINE [Suspect]
     Dosage: UNK
     Route: 048
     Dates: start: 20100218, end: 20100219
  14. PREDONINE [Suspect]
     Dosage: UNK
     Route: 048
     Dates: start: 20100220, end: 20100226
  15. PREDONINE [Suspect]
     Dosage: UNK
     Route: 048
     Dates: start: 20100227, end: 20100401
  16. PREDONINE [Suspect]
     Dosage: UNK
     Route: 048
     Dates: start: 20100402, end: 20100521
  17. DENOSINE [Suspect]
     Indication: CYTOMEGALOVIRUS INFECTION
     Dosage: 250MG
     Route: 042
     Dates: start: 20100303, end: 20100311
  18. DENOSINE [Suspect]
     Dosage: 125MG
     Route: 042
     Dates: start: 20100312, end: 20100323
  19. DENOSINE [Suspect]
     Dosage: 250MG
     Route: 042
     Dates: start: 20100427, end: 20100510
  20. SIMULECT [Concomitant]
     Indication: RENAL TRANSPLANT
     Dosage: 20MG
     Route: 042
     Dates: start: 20100210, end: 20100214
  21. SOL-MELCORT [Concomitant]
     Indication: RENAL TRANSPLANT
     Dosage: UNK
     Route: 042
     Dates: start: 20100210, end: 20100210
  22. RITUXAN [Concomitant]
     Dosage: 200 MG
     Route: 042
     Dates: start: 20100128, end: 20100128

REACTIONS (6)
  - CARDIAC FAILURE [None]
  - CYTOMEGALOVIRUS INFECTION [None]
  - KIDNEY TRANSPLANT REJECTION [None]
  - MELAENA [None]
  - PULMONARY OEDEMA [None]
  - WHITE BLOOD CELL COUNT DECREASED [None]
